FAERS Safety Report 9100777 (Version 1)
Quarter: 2013Q1

REPORT INFORMATION
  Report Type: Spontaneous
  Country: US (occurrence: US)
  Receive Date: 20130215
  Receipt Date: 20130215
  Transmission Date: 20140127
  Serious: Yes (Hospitalization)
  Sender: FDA-Public Use
  Company Number: US-BAYER-2013-019263

PATIENT
  Age: 39 Year
  Sex: Female

DRUGS (7)
  1. BEYAZ [Suspect]
  2. YAZ [Suspect]
  3. YASMIN [Suspect]
  4. CEFDINIR [Concomitant]
     Dosage: UNK
     Dates: start: 20120913
  5. ADVAIR [Concomitant]
     Dosage: UNK
     Dates: start: 20120913
  6. CLINDAMYCIN [Concomitant]
     Dosage: 2%
  7. OMNICEF [Concomitant]

REACTIONS (1)
  - Pulmonary embolism [None]
